FAERS Safety Report 21936266 (Version 1)
Quarter: 2023Q1

REPORT INFORMATION
  Report Type: Spontaneous
  Country: DE (occurrence: DE)
  Receive Date: 20230201
  Receipt Date: 20230201
  Transmission Date: 20230417
  Serious: Yes (Other)
  Sender: FDA-Public Use
  Company Number: DE-002147023-NVSC2023DE019173

PATIENT
  Sex: Female

DRUGS (1)
  1. BEOVU [Suspect]
     Active Substance: BROLUCIZUMAB-DBLL
     Indication: Product used for unknown indication
     Dosage: 1 DOSAGE FORM (1 PRE FILLED SYRINGE)
     Route: 065

REACTIONS (2)
  - Uveitis [Unknown]
  - Anterior chamber cell [Unknown]

NARRATIVE: CASE EVENT DATE: 20230125
